FAERS Safety Report 23137651 (Version 1)
Quarter: 2023Q4

REPORT INFORMATION
  Report Type: Spontaneous
  Country: US (occurrence: US)
  Receive Date: 20231102
  Receipt Date: 20231102
  Transmission Date: 20240110
  Serious: Yes (Other)
  Sender: FDA-Public Use
  Company Number: US-DSJP-DSJ-2023-144739

PATIENT
  Age: 54 Year
  Sex: Female

DRUGS (15)
  1. TRASTUZUMAB DERUXTECAN [Suspect]
     Active Substance: TRASTUZUMAB DERUXTECAN
     Indication: Metastases to central nervous system
     Dosage: THREE CYCLES
     Route: 065
  2. TRASTUZUMAB DERUXTECAN [Suspect]
     Active Substance: TRASTUZUMAB DERUXTECAN
     Indication: Neuroendocrine carcinoma
     Dosage: SIX CYCLES
     Route: 065
  3. TRASTUZUMAB DERUXTECAN [Suspect]
     Active Substance: TRASTUZUMAB DERUXTECAN
     Dosage: NINE CYCLES
     Route: 065
  4. TRASTUZUMAB DERUXTECAN [Suspect]
     Active Substance: TRASTUZUMAB DERUXTECAN
     Dosage: 5.4 MG/KG, ONCE EVERY 21 DAYS
     Route: 065
  5. CARBOPLATIN [Concomitant]
     Active Substance: CARBOPLATIN
     Indication: Neuroendocrine carcinoma
     Dosage: FIVE CYCLES
     Route: 065
  6. CARBOPLATIN [Concomitant]
     Active Substance: CARBOPLATIN
     Indication: Metastases to central nervous system
  7. ATEZOLIZUMAB [Concomitant]
     Active Substance: ATEZOLIZUMAB
     Indication: Neuroendocrine carcinoma
     Dosage: FIVE CYCLES
     Route: 065
  8. ATEZOLIZUMAB [Concomitant]
     Active Substance: ATEZOLIZUMAB
     Indication: Metastases to central nervous system
  9. ETOPOSIDE [Concomitant]
     Active Substance: ETOPOSIDE
     Indication: Neuroendocrine carcinoma
     Dosage: FIVE CYCLES
     Route: 065
  10. ETOPOSIDE [Concomitant]
     Active Substance: ETOPOSIDE
     Indication: Metastases to central nervous system
  11. IPILIMUMAB [Concomitant]
     Active Substance: IPILIMUMAB
     Indication: Neuroendocrine carcinoma
     Dosage: TWO CYCLES
     Route: 065
  12. IPILIMUMAB [Concomitant]
     Active Substance: IPILIMUMAB
     Indication: Metastases to central nervous system
  13. NIVOLUMAB [Concomitant]
     Active Substance: NIVOLUMAB
     Indication: Neuroendocrine carcinoma
     Dosage: TWO CYCLES
     Route: 065
  14. NIVOLUMAB [Concomitant]
     Active Substance: NIVOLUMAB
     Indication: Metastases to central nervous system
  15. PREDNISONE [Concomitant]
     Active Substance: PREDNISONE
     Indication: Prophylaxis
     Dosage: UNK
     Route: 065

REACTIONS (2)
  - Pneumonitis [Recovered/Resolved]
  - Off label use [Unknown]
